FAERS Safety Report 15526346 (Version 1)
Quarter: 2018Q4

REPORT INFORMATION
  Report Type: Spontaneous
  Country: US (occurrence: US)
  Receive Date: 20181018
  Receipt Date: 20181018
  Transmission Date: 20190205
  Serious: Yes (Hospitalization)
  Sender: FDA-Public Use
  Company Number: US-LOREAL USA PRODUCTS, INC.-2018LOR00009

PATIENT
  Age: 64 Year
  Sex: Female

DRUGS (1)
  1. KIEHLS SINCE 1851 DERMATOLOGIST SOLUTIONS SUPERFLUID UV DEFENSE BROAD SPF50 PLUS [Suspect]
     Active Substance: AVOBENZONE\HOMOSALATE\OCTISALATE\OCTOCRYLENE\OXYBENZONE
     Dosage: UNK
     Dates: start: 20180910

REACTIONS (3)
  - Colectomy [Not Recovered/Not Resolved]
  - Gastrointestinal pain [Not Recovered/Not Resolved]
  - Large intestinal haemorrhage [Not Recovered/Not Resolved]

NARRATIVE: CASE EVENT DATE: 20180916
